FAERS Safety Report 25813678 (Version 1)
Quarter: 2025Q3

REPORT INFORMATION
  Report Type: Other
  Country: US (occurrence: US)
  Receive Date: 20250917
  Receipt Date: 20250917
  Transmission Date: 20251020
  Serious: No
  Sender: TRAVERE THERAPEUTICS
  Company Number: US-TRAVERE-2025TVT01112

PATIENT
  Age: 61 Year
  Sex: Male

DRUGS (2)
  1. FILSPARI [Suspect]
     Active Substance: SPARSENTAN
     Indication: Chronic kidney disease
     Dosage: 1 TABLET, ONCE DAILY FOR DAYS 1-14
     Route: 048
  2. FILSPARI [Suspect]
     Active Substance: SPARSENTAN
     Dosage: 2 TABLETS, ONCE DAILY ON DAYS 15-30
     Route: 048

REACTIONS (5)
  - Hypotension [Unknown]
  - Fatigue [Unknown]
  - Decreased appetite [Unknown]
  - Product use in unapproved indication [Unknown]
  - Presyncope [Unknown]

NARRATIVE: CASE EVENT DATE: 20250701
